FAERS Safety Report 22251373 (Version 1)
Quarter: 2023Q2

REPORT INFORMATION
  Report Type: Spontaneous
  Country: US (occurrence: None)
  Receive Date: 20230425
  Receipt Date: 20230425
  Transmission Date: 20230721
  Serious: No
  Sender: FDA-Public Use
  Company Number: 2023A082317

PATIENT
  Sex: Female

DRUGS (2)
  1. PULMICORT FLEXHALER [Suspect]
     Active Substance: BUDESONIDE
     Indication: Asthma
     Route: 055
  2. PULMICORT FLEXHALER [Suspect]
     Active Substance: BUDESONIDE
     Indication: Asthma
     Dosage: ONLY TAKES 3 PUFFS A DAY
     Route: 055

REACTIONS (6)
  - Cough [Not Recovered/Not Resolved]
  - Asthma [Not Recovered/Not Resolved]
  - Osteoporosis [Not Recovered/Not Resolved]
  - Device delivery system issue [Unknown]
  - Drug dose omission by device [Not Recovered/Not Resolved]
  - Intentional product misuse [Not Recovered/Not Resolved]
